FAERS Safety Report 11568443 (Version 1)
Quarter: 2015Q3

REPORT INFORMATION
  Report Type: Spontaneous
  Country: US (occurrence: US)
  Receive Date: 20150916
  Receipt Date: 20150916
  Transmission Date: 20151125
  Serious: No
  Sender: FDA-Public Use
  Company Number: US-ELI_LILLY_AND_COMPANY-US200908003829

PATIENT
  Age: 67 Year
  Sex: Female

DRUGS (9)
  1. SPIRIVA [Concomitant]
     Active Substance: TIOTROPIUM BROMIDE MONOHYDRATE
     Dosage: UNK
  2. SALINE [Concomitant]
     Active Substance: SODIUM CHLORIDE
     Dosage: UNK
  3. CLONIDINE. [Concomitant]
     Active Substance: CLONIDINE
     Dosage: UNK
  4. THYROXIN [Concomitant]
     Active Substance: LEVOTHYROXINE
     Dosage: UNK
  5. CLONAZEPAM. [Concomitant]
     Active Substance: CLONAZEPAM
     Dosage: UNK
  6. FORTEO [Suspect]
     Active Substance: TERIPARATIDE
     Dosage: UNK, UNK
     Dates: start: 20090624
  7. PROVIGIL [Concomitant]
     Active Substance: MODAFINIL
     Dosage: UNK
  8. DILAUDID [Concomitant]
     Active Substance: HYDROMORPHONE HYDROCHLORIDE
     Dosage: UNK
  9. LEXAPRO [Concomitant]
     Active Substance: ESCITALOPRAM OXALATE
     Dosage: UNK

REACTIONS (8)
  - Neck pain [Recovering/Resolving]
  - Abdominal discomfort [Not Recovered/Not Resolved]
  - Headache [Recovering/Resolving]
  - Wrist fracture [Not Recovered/Not Resolved]
  - Rhinorrhoea [Unknown]
  - Depressed mood [Unknown]
  - Fatigue [Unknown]
  - Abdominal pain upper [Recovering/Resolving]

NARRATIVE: CASE EVENT DATE: 2009
